FAERS Safety Report 17843427 (Version 2)
Quarter: 2020Q2

REPORT INFORMATION
  Report Type: Spontaneous
  Country: MY (occurrence: MY)
  Receive Date: 20200530
  Receipt Date: 20200603
  Transmission Date: 20200714
  Serious: Yes (Other)
  Sender: FDA-Public Use
  Company Number: MY-AUROBINDO-AUR-APL-2020-026119

PATIENT
  Age: 67 Year
  Sex: Male

DRUGS (1)
  1. AUROTAZ-P POWDER FOR INJECTION 4.5G [Suspect]
     Active Substance: PIPERACILLIN SODIUM\TAZOBACTAM SODIUM
     Indication: ORCHITIS
     Dosage: 4.5 GRAM, FOUR TIMES/DAY (EVERY 6 H)
     Route: 042

REACTIONS (5)
  - Urticaria [Recovered/Resolved]
  - Hyperhidrosis [Recovered/Resolved]
  - Dizziness [Recovered/Resolved]
  - Blood pressure decreased [Recovered/Resolved]
  - Feeling hot [Recovered/Resolved]
